FAERS Safety Report 9838741 (Version 1)
Quarter: 2013Q4

REPORT INFORMATION
  Report Type: Spontaneous
  Country: US (occurrence: None)
  Receive Date: 20131206
  Receipt Date: 20131206
  Transmission Date: 20140711
  Serious: Yes (Hospitalization, Other)
  Sender: FDA-Public Use
  Company Number: 378860

PATIENT
  Sex: Female
  Weight: 91.6 kg

DRUGS (2)
  1. NOVOLOG [Suspect]
     Indication: DIABETES MELLITUS
     Dosage: SLIDING SCALE RANGING FROM 6 TO 10 UNITS, SUBCUTANEOUS
     Route: 058
  2. LANTUS [Suspect]
     Dosage: 85 U QD, SUBCUTANEOUS
     Route: 058

REACTIONS (2)
  - Incorrect product storage [None]
  - Diabetic ketoacidosis [None]
